FAERS Safety Report 8686707 (Version 2)
Quarter: 2013Q1

REPORT INFORMATION
  Report Type: Spontaneous
  Country: US (occurrence: US)
  Receive Date: 20120727
  Receipt Date: 20130325
  Transmission Date: 20140127
  Serious: No
  Sender: FDA-Public Use
  Company Number: US-BIOGENIDEC-2012BI026784

PATIENT
  Sex: Male

DRUGS (2)
  1. TYSABRI [Suspect]
     Indication: MULTIPLE SCLEROSIS
     Route: 042
     Dates: start: 20080408, end: 20120606
  2. TYSABRI [Suspect]
     Indication: MULTIPLE SCLEROSIS
     Dates: start: 20121009

REACTIONS (12)
  - Paraesthesia [Not Recovered/Not Resolved]
  - Central nervous system lesion [Not Recovered/Not Resolved]
  - Pain [Not Recovered/Not Resolved]
  - Syncope [Recovered/Resolved]
  - General physical health deterioration [Recovered/Resolved with Sequelae]
  - Fall [Recovered/Resolved]
  - Muscle spasms [Recovered/Resolved with Sequelae]
  - Monoplegia [Recovered/Resolved]
  - Paralysis [Recovered/Resolved]
  - Multiple sclerosis relapse [Recovered/Resolved with Sequelae]
  - Malaise [Not Recovered/Not Resolved]
  - Asthenia [Recovered/Resolved with Sequelae]
